FAERS Safety Report 5078211-4 (Version None)
Quarter: 2006Q3

REPORT INFORMATION
  Report Type: 
  Country: None (occurrence: None)
  Receive Date: 20060811
  Receipt Date: 20060731
  Transmission Date: 20061208
  Serious: Yes (Other)
  Sender: FDA-Public Use
  Company Number: US-BRISTOL-MYERS SQUIBB COMPANY-13460308

PATIENT
  Age: 49 Year
  Sex: Female
  Weight: 75 kg

DRUGS (9)
  1. ORENCIA [Suspect]
     Indication: RHEUMATOID ARTHRITIS
     Route: 042
     Dates: end: 20060717
  2. METHOTREXATE [Concomitant]
  3. FOLIC ACID [Concomitant]
  4. LEUCOVORIN CALCIUM [Concomitant]
  5. PEPCID [Concomitant]
  6. RELAFEN [Concomitant]
  7. PROZAC [Concomitant]
  8. ELAVIL [Concomitant]
  9. GLUCOSAMINE [Concomitant]

REACTIONS (7)
  - CHEST DISCOMFORT [None]
  - DRUG INEFFECTIVE [None]
  - FATIGUE [None]
  - HYPOAESTHESIA [None]
  - HYPOTENSION [None]
  - MUSCLE SPASMS [None]
  - SYNCOPE [None]
